FAERS Safety Report 9617426 (Version 1)
Quarter: 2013Q4

REPORT INFORMATION
  Report Type: Report from Study
  Country: AR (occurrence: AR)
  Receive Date: 20131011
  Receipt Date: 20131011
  Transmission Date: 20140711
  Serious: Yes (Other)
  Sender: FDA-Public Use
  Company Number: PHHY2013AR114381

PATIENT
  Sex: Male

DRUGS (2)
  1. DIOVAN [Suspect]
     Indication: HYPERTENSION
     Dosage: 1 DF, (320 MG) DAILY
     Route: 048
     Dates: end: 201301
  2. DIOVAN [Suspect]
     Dosage: 160 MG
     Route: 048

REACTIONS (3)
  - Diabetes mellitus [Not Recovered/Not Resolved]
  - Hypotension [Unknown]
  - Blood pressure increased [Recovered/Resolved]
